FAERS Safety Report 18269468 (Version 4)
Quarter: 2023Q4

REPORT INFORMATION
  Report Type: Spontaneous
  Country: US (occurrence: US)
  Receive Date: 20200915
  Receipt Date: 20231211
  Transmission Date: 20240109
  Serious: Yes (Hospitalization, Other)
  Sender: FDA-Public Use
  Company Number: US-GILEAD-2020-0494476

PATIENT
  Sex: Male
  Weight: 92.517 kg

DRUGS (18)
  1. VIREAD [Suspect]
     Active Substance: TENOFOVIR DISOPROXIL FUMARATE
     Indication: HIV infection
     Dosage: UNK
     Route: 048
     Dates: start: 2001, end: 2006
  2. ATRIPLA [Suspect]
     Active Substance: EFAVIRENZ\EMTRICITABINE\TENOFOVIR DISOPROXIL FUMARATE
     Indication: HIV infection
     Dosage: UNK
     Route: 048
     Dates: start: 2001
  3. TRUVADA [Suspect]
     Active Substance: EMTRICITABINE\TENOFOVIR DISOPROXIL FUMARATE
     Indication: HIV infection
     Dosage: UNK
     Route: 048
     Dates: start: 2001
  4. ATORVASTATIN [Concomitant]
     Active Substance: ATORVASTATIN
  5. BACTRIM [Concomitant]
     Active Substance: SULFAMETHOXAZOLE\TRIMETHOPRIM
  6. CARVEDILOL [Concomitant]
     Active Substance: CARVEDILOL
  7. EPIVIR [Concomitant]
     Active Substance: LAMIVUDINE
  8. FAMOTIDINE [Concomitant]
     Active Substance: FAMOTIDINE
  9. LEVOTHYROXINE [Concomitant]
     Active Substance: LEVOTHYROXINE
  10. MAGNESIUM [Concomitant]
     Active Substance: MAGNESIUM
  11. MYCOPHENOLIC ACID [Concomitant]
     Active Substance: MYCOPHENOLIC ACID
  12. PREDNISONE [Concomitant]
     Active Substance: PREDNISONE
  13. TACROLIMUS [Concomitant]
     Active Substance: TACROLIMUS
  14. TRIUMEQ [Concomitant]
     Active Substance: ABACAVIR SULFATE\DOLUTEGRAVIR SODIUM\LAMIVUDINE
  15. VIDEX [Concomitant]
     Active Substance: DIDANOSINE
  16. SUSTIVA [Concomitant]
     Active Substance: EFAVIRENZ
     Dosage: UNK
  17. ZIAGEN [Concomitant]
     Active Substance: ABACAVIR SULFATE
     Dosage: UNK
  18. METOPROLOL [Concomitant]
     Active Substance: METOPROLOL

REACTIONS (10)
  - Acute kidney injury [Not Recovered/Not Resolved]
  - End stage renal disease [Not Recovered/Not Resolved]
  - Chronic kidney disease [Not Recovered/Not Resolved]
  - Hyperkalaemia [Not Recovered/Not Resolved]
  - Pain [Unknown]
  - Emotional distress [Unknown]
  - Anxiety [Unknown]
  - Anhedonia [Unknown]
  - Hypertension [Not Recovered/Not Resolved]
  - Loss of personal independence in daily activities [Unknown]

NARRATIVE: CASE EVENT DATE: 20050101
